FAERS Safety Report 16808146 (Version 1)
Quarter: 2019Q3

REPORT INFORMATION
  Report Type: Not Available
  Country: US (occurrence: US)
  Receive Date: 20190916
  Receipt Date: 20190916
  Transmission Date: 20191005
  Serious: No
  Sender: FDA-Public Use
  Company Number: US-NEUROCRINE BIOSCIENCES INC.-2019NBI02583

PATIENT
  Age: 82 Year
  Sex: Male

DRUGS (2)
  1. INGREZZA [Suspect]
     Active Substance: VALBENAZINE
     Indication: TARDIVE DYSKINESIA
     Route: 048
     Dates: start: 20190824, end: 20190830
  2. INGREZZA [Suspect]
     Active Substance: VALBENAZINE
     Dosage: IN THE EVENING
     Route: 048
     Dates: start: 20190831

REACTIONS (4)
  - Lethargy [Not Recovered/Not Resolved]
  - Cognitive disorder [Not Recovered/Not Resolved]
  - Thirst [Not Recovered/Not Resolved]
  - Insomnia [Not Recovered/Not Resolved]

NARRATIVE: CASE EVENT DATE: 20190831
